FAERS Safety Report 24122921 (Version 2)
Quarter: 2025Q3

REPORT INFORMATION
  Report Type: Spontaneous
  Country: EU (occurrence: EU)
  Receive Date: 20240723
  Receipt Date: 20250707
  Transmission Date: 20251020
  Serious: No
  Sender: ALKEM
  Company Number: EU-ALKEM LABORATORIES LIMITED-FR-ALKEM-2022-15456

PATIENT
  Sex: Male

DRUGS (9)
  1. DRONABINOL [Suspect]
     Active Substance: DRONABINOL
     Indication: Neuralgia
     Dosage: 2.5 MILLIGRAM, QD (PROGRESSIVE INCREASE FROM 1 TO 3 CAPSULES DAILY)
     Route: 065
  2. DRONABINOL [Suspect]
     Active Substance: DRONABINOL
     Dosage: 15 MILLIGRAM, QD (6 CAPSULES DAILY)
     Route: 065
  3. DRONABINOL [Suspect]
     Active Substance: DRONABINOL
     Dosage: UNK, QD (3 TO 4 CAPSULES DAILY)
     Route: 065
  4. DRONABINOL [Suspect]
     Active Substance: DRONABINOL
     Dosage: 7.5 MILLIGRAM, QD (3 CAPSULES DAILY PLUS OR MINUS 1)
     Route: 065
  5. BACLOFEN [Concomitant]
     Active Substance: BACLOFEN
     Indication: Product used for unknown indication
     Dosage: 9 DOSAGE FORM, QD (3-3-3)
     Route: 065
  6. Capsaicine [Concomitant]
     Indication: Cervical radiculopathy
     Route: 065
  7. VENLAFAXINE HYDROCHLORIDE [Concomitant]
     Active Substance: VENLAFAXINE HYDROCHLORIDE
     Indication: Product used for unknown indication
     Dosage: 75 MILLIGRAM, QD (IN THE MORNING)
     Route: 065
  8. LIDOCAINE [Concomitant]
     Active Substance: LIDOCAINE
     Indication: Cervical radiculopathy
     Route: 065
  9. PREGABALIN [Concomitant]
     Active Substance: PREGABALIN
     Indication: Product used for unknown indication
     Route: 065

REACTIONS (6)
  - Pain [Unknown]
  - Therapy interrupted [Unknown]
  - Off label use [Unknown]
  - Prescribed underdose [Unknown]
  - Product prescribing issue [Unknown]
  - Product availability issue [Unknown]
